FAERS Safety Report 24905265 (Version 1)
Quarter: 2025Q1

REPORT INFORMATION
  Report Type: Spontaneous
  Country: JP (occurrence: JP)
  Receive Date: 20250130
  Receipt Date: 20250130
  Transmission Date: 20250408
  Serious: Yes (Hospitalization, Other)
  Sender: BRISTOL-MYERS SQUIBB COMPANY
  Company Number: JP-BRISTOL-MYERS SQUIBB COMPANY-2025-013367

PATIENT
  Sex: Male

DRUGS (1)
  1. ELIQUIS [Suspect]
     Active Substance: APIXABAN
     Indication: Product used for unknown indication
     Route: 048

REACTIONS (8)
  - Upper gastrointestinal haemorrhage [Unknown]
  - Haematochezia [Unknown]
  - Fatigue [Unknown]
  - Abdominal pain upper [Unknown]
  - Faeces discoloured [Unknown]
  - Blood pressure decreased [Unknown]
  - Cardiac dysfunction [Unknown]
  - Renal impairment [Unknown]

NARRATIVE: CASE EVENT DATE: 20250119
